FAERS Safety Report 21559194 (Version 1)
Quarter: 2022Q4

REPORT INFORMATION
  Report Type: Spontaneous
  Country: US (occurrence: US)
  Receive Date: 20221107
  Receipt Date: 20221107
  Transmission Date: 20230113
  Serious: Yes (Hospitalization)
  Sender: FDA-Public Use
  Company Number: US-TAKEDA-2022TUS080875

PATIENT
  Sex: Female

DRUGS (8)
  1. GAMMAGARD S/D [Suspect]
     Active Substance: HUMAN IMMUNOGLOBULIN G
     Indication: Product used for unknown indication
     Route: 065
  2. GAMMAGARD S/D [Suspect]
     Active Substance: HUMAN IMMUNOGLOBULIN G
     Indication: Product used for unknown indication
     Route: 065
  3. GAMMAGARD LIQUID [Suspect]
     Active Substance: HUMAN IMMUNOGLOBULIN G
     Indication: Product used for unknown indication
     Route: 065
  4. HUMAN IMMUNOGLOBULIN G [Suspect]
     Active Substance: HUMAN IMMUNOGLOBULIN G
     Indication: Product used for unknown indication
     Dosage: UNK
     Route: 042
     Dates: start: 20220620
  5. TYVASO [Suspect]
     Active Substance: TREPROSTINIL
     Indication: Pulmonary arterial hypertension
     Dosage: UNK
     Route: 055
     Dates: start: 20220108, end: 202208
  6. TYVASO [Suspect]
     Active Substance: TREPROSTINIL
     Dosage: 72 MICROGRAM
     Route: 055
     Dates: start: 2022, end: 2022
  7. TYVASO [Suspect]
     Active Substance: TREPROSTINIL
     Dosage: 48 MICROGRAM, QID
     Route: 055
     Dates: start: 2022
  8. MACITENTAN [Suspect]
     Active Substance: MACITENTAN
     Indication: Pulmonary arterial hypertension
     Dosage: 10 MILLIGRAM, QD
     Route: 048
     Dates: start: 20220920

REACTIONS (7)
  - Vomiting [Recovered/Resolved]
  - Diarrhoea [Recovered/Resolved]
  - Influenza [Unknown]
  - Dehydration [Recovered/Resolved]
  - Pharyngeal swelling [Unknown]
  - Oropharyngeal pain [Unknown]
  - Gastric polyps [Recovering/Resolving]

NARRATIVE: CASE EVENT DATE: 20220101
